FAERS Safety Report 8515866 (Version 7)
Quarter: 2013Q2

REPORT INFORMATION
  Report Type: Spontaneous
  Country: DK (occurrence: DK)
  Receive Date: 20120417
  Receipt Date: 20130422
  Transmission Date: 20140414
  Serious: Yes (Death, Hospitalization)
  Sender: FDA-Public Use
  Company Number: DK-ROCHE-1058608

PATIENT
  Age: 59 Year
  Sex: Male
  Weight: 71 kg

DRUGS (7)
  1. ROACTEMRA [Suspect]
     Indication: RHEUMATOID ARTHRITIS
     Dosage: STARTDOSIS 8 MG/KG.
     Route: 042
     Dates: start: 20100827, end: 20120223
  2. ROACTEMRA [Suspect]
     Route: 042
     Dates: start: 20111103
  3. ROACTEMRA [Suspect]
     Route: 042
     Dates: start: 20111130
  4. ROACTEMRA [Suspect]
     Route: 042
     Dates: start: 20120111
  5. ROACTEMRA [Suspect]
     Route: 042
     Dates: start: 20120223
  6. PREDNISOLON [Suspect]
     Indication: RHEUMATOID ARTHRITIS
     Dosage: BEHANDLING STOPPET PGA. MORS, CUMULATIVE DOSE 27217.8125
     Route: 048
     Dates: start: 20020404
  7. METHOTREXATE [Suspect]
     Indication: RHEUMATOID ARTHRITIS
     Dosage: BEHANDLING STOPPET PGA. MORS, DRUG REPORTED AS EMTHEXATE, CUMULATIVE DOSE 7776.51785
     Route: 048
     Dates: start: 20020404

REACTIONS (7)
  - Staphylococcal sepsis [Fatal]
  - Pneumonia [Fatal]
  - Cardiogenic shock [Fatal]
  - Cardiac failure [Fatal]
  - Pleural effusion [Not Recovered/Not Resolved]
  - Acute myocardial infarction [Not Recovered/Not Resolved]
  - Disseminated intravascular coagulation [Not Recovered/Not Resolved]
